FAERS Safety Report 7438304-0 (Version None)
Quarter: 2011Q2

REPORT INFORMATION
  Report Type: 
  Country: None (occurrence: None)
  Receive Date: 20110426
  Receipt Date: 20110422
  Transmission Date: 20111010
  Serious: Yes (Hospitalization)
  Sender: FDA-Public Use
  Company Number: US-PFIZER INC-2011041972

PATIENT
  Sex: Female
  Weight: 68 kg

DRUGS (8)
  1. CHANTIX [Suspect]
     Indication: SMOKING CESSATION THERAPY
     Dosage: 0.5 MG, 1X/DAY
     Route: 048
     Dates: start: 20100701, end: 20100801
  2. ATENOLOL [Concomitant]
     Indication: CARDIAC DISORDER
     Dosage: 25 MG, 1X/DAY
  3. GABAPENTIN [Concomitant]
     Indication: HYPOAESTHESIA
     Dosage: 300 MG, 1X/DAY
  4. NEXIUM [Concomitant]
     Indication: GASTRIC DISORDER
     Dosage: 40 MG, 1X/DAY
  5. HUMALOG [Concomitant]
     Indication: DIABETES MELLITUS
     Dosage: UNK
  6. FENOFIBRATE [Concomitant]
     Indication: BLOOD TRIGLYCERIDES INCREASED
     Dosage: 150 MG, 1X/DAY
  7. FUROSEMIDE [Concomitant]
     Dosage: 20 MG, 1X/DAY
  8. VYTORIN [Concomitant]
     Indication: BLOOD CHOLESTEROL INCREASED
     Dosage: 10/40 MG DAILY

REACTIONS (3)
  - MALAISE [None]
  - SYNCOPE [None]
  - ANAEMIA [None]
